FAERS Safety Report 10395750 (Version 1)
Quarter: 2014Q3

REPORT INFORMATION
  Report Type: Spontaneous
  Country: TR (occurrence: TR)
  Receive Date: 20140820
  Receipt Date: 20140820
  Transmission Date: 20150326
  Serious: Yes (Death, Hospitalization)
  Sender: FDA-Public Use
  Company Number: TR-SA-2014SA108963

PATIENT
  Age: 65 Year
  Sex: Female

DRUGS (1)
  1. ENOXAPARIN SODIUM. [Suspect]
     Active Substance: ENOXAPARIN SODIUM
     Indication: THROMBOSIS PROPHYLAXIS
     Route: 058

REACTIONS (13)
  - Haemoglobin decreased [Unknown]
  - Cardiac arrest [Fatal]
  - Hypotension [Unknown]
  - Tachycardia [Unknown]
  - Prothrombin time prolonged [Unknown]
  - Abdominal wall haematoma [Unknown]
  - Shock [Fatal]
  - Abdominal pain [Unknown]
  - Abdominal tenderness [Unknown]
  - International normalised ratio increased [Unknown]
  - Abdominal rigidity [Unknown]
  - Constipation [Unknown]
  - Ecchymosis [Unknown]
